FAERS Safety Report 10086206 (Version 4)
Quarter: 2014Q2

REPORT INFORMATION
  Report Type: Report from Study
  Country: CA (occurrence: CA)
  Receive Date: 20140418
  Receipt Date: 20140502
  Transmission Date: 20141212
  Serious: Yes (Other)
  Sender: FDA-Public Use
  Company Number: CA-JNJFOC-20140401357

PATIENT
  Age: 30 Year
  Sex: Female
  Weight: 65.2 kg

DRUGS (7)
  1. REMICADE [Suspect]
     Indication: HIDRADENITIS
     Dosage: WEEK 0 DOSE
     Route: 042
     Dates: start: 20140331, end: 20140423
  2. METFORMIN [Concomitant]
     Indication: TYPE 1 DIABETES MELLITUS
     Route: 048
  3. INSULIN [Concomitant]
     Dosage: 30 UNITS AM AND 40 UNITS PM
     Route: 065
  4. JANUVIA [Concomitant]
     Route: 065
  5. CELEXA [Concomitant]
     Indication: DEPRESSION
     Route: 048
  6. NOVOLIN NOS [Concomitant]
     Indication: TYPE 1 DIABETES MELLITUS
     Dosage: 300 IU IN AM AND 400 IU WITH SUPPER
     Route: 065
  7. LISINOPRIL [Concomitant]
     Indication: HYPERTENSION
     Route: 048

REACTIONS (6)
  - Nausea [Recovered/Resolved]
  - Vertigo [Not Recovered/Not Resolved]
  - Vomiting [Not Recovered/Not Resolved]
  - Infusion related reaction [Recovered/Resolved]
  - Pruritus [Recovered/Resolved]
  - Off label use [Unknown]
